FAERS Safety Report 16746836 (Version 1)
Quarter: 2019Q3

REPORT INFORMATION
  Report Type: Spontaneous
  Country: US (occurrence: US)
  Receive Date: 20190827
  Receipt Date: 20190827
  Transmission Date: 20191005
  Serious: Yes (Other)
  Sender: FDA-Public Use
  Company Number: US-BAYER-2019-152440

PATIENT
  Age: 71 Year
  Sex: Female
  Weight: 81.63 kg

DRUGS (5)
  1. CITRACAL CALCIUM PEARLS +D3 [Suspect]
     Active Substance: CALCIUM\CHOLECALCIFEROL
     Indication: NUTRITIONAL SUPPLEMENTATION
     Dosage: UNK
  2. MELATONIN VITACOST [Concomitant]
  3. GREEN COFFEE BEAN [Concomitant]
  4. BAYER LOW DOSE [Suspect]
     Active Substance: ASPIRIN
     Dosage: 1 DF, QD
     Route: 048
  5. MELALEUCA ALTERNIFOLIA [Concomitant]
     Active Substance: TEA TREE OIL

REACTIONS (1)
  - Gastric ulcer [Not Recovered/Not Resolved]
